FAERS Safety Report 5134069-6 (Version None)
Quarter: 2006Q4

REPORT INFORMATION
  Report Type: 
  Country: None (occurrence: None)
  Receive Date: 20061019
  Receipt Date: 20061009
  Transmission Date: 20070319
  Serious: Yes (Other)
  Sender: FDA-Public Use
  Company Number: 2006124027

PATIENT
  Sex: Male

DRUGS (1)
  1. AMLODIPINE [Suspect]
     Dosage: ORAL

REACTIONS (1)
  - GASTRECTOMY [None]
